FAERS Safety Report 16054925 (Version 1)
Quarter: 2019Q1

REPORT INFORMATION
  Report Type: Report from Study
  Country: ES (occurrence: ES)
  Receive Date: 20190310
  Receipt Date: 20190310
  Transmission Date: 20190418
  Serious: Yes (Hospitalization, Other)
  Sender: FDA-Public Use
  Company Number: ES-ACCORD-111043

PATIENT
  Age: 61 Year
  Sex: Male
  Weight: 89 kg

DRUGS (20)
  1. FOLINIC ACID [Suspect]
     Active Substance: LEUCOVORIN
     Indication: COLORECTAL CANCER METASTATIC
     Dosage: ALSO RECEIVED 19-MAY-2014 TO 19-MAY-2014
     Route: 042
     Dates: start: 20140602, end: 20140602
  2. ENOXAPARIN [Concomitant]
     Active Substance: ENOXAPARIN
     Dosage: UNK
     Dates: start: 20140616, end: 20140617
  3. METOCLOPRAMIDE. [Concomitant]
     Active Substance: METOCLOPRAMIDE
     Route: 065
     Dates: start: 201405
  4. TAMSULOSIN/TAMSULOSIN HYDROCHLORIDE [Concomitant]
     Dosage: UNK
     Dates: start: 20140716, end: 20140722
  5. AFLIBERCEPT [Suspect]
     Active Substance: AFLIBERCEPT
     Indication: COLORECTAL CANCER METASTATIC
     Dosage: 356 MG,QCY
     Route: 065
     Dates: start: 20140602, end: 20140602
  6. FLUOROURACIL. [Suspect]
     Active Substance: FLUOROURACIL
     Indication: COLORECTAL CANCER METASTATIC
     Dosage: ALSO RECEIVED 4800MG 02-JUN-2014 TO 02-JUN-2014,ALSO RECEIVED 800MG 02-JUN-2014 TO 02-JUN-2014
     Route: 042
     Dates: start: 20140519, end: 20140519
  7. AFLIBERCEPT [Suspect]
     Active Substance: AFLIBERCEPT
     Indication: COLORECTAL CANCER METASTATIC
     Dosage: 356 MG,QCY
     Route: 065
     Dates: start: 20140519, end: 20140519
  8. OMEPRAZOLE. [Concomitant]
     Active Substance: OMEPRAZOLE
     Dosage: UNK
     Dates: start: 201405
  9. FOLINIC ACID [Suspect]
     Active Substance: LEUCOVORIN
     Indication: COLORECTAL CANCER METASTATIC
     Dosage: 800 MG, QCY
     Dates: start: 20140602, end: 20140602
  10. LEUCOVORIN. [Suspect]
     Active Substance: LEUCOVORIN
     Indication: COLORECTAL CANCER METASTATIC
     Dosage: 800 MG, QCY
     Dates: start: 20140519, end: 20140519
  11. ALLOPURINOL. [Concomitant]
     Active Substance: ALLOPURINOL
     Dosage: UNK
     Dates: start: 2013
  12. IRINOTECAN [Suspect]
     Active Substance: IRINOTECAN
     Indication: COLORECTAL CANCER METASTATIC
     Route: 065
     Dates: start: 20140602, end: 20140602
  13. IRON [Concomitant]
     Active Substance: IRON
     Dosage: UNK
  14. ATROPINE. [Concomitant]
     Active Substance: ATROPINE
     Indication: PROPHYLAXIS
     Dosage: UNK
     Dates: start: 20140519, end: 20140519
  15. MEPIVACAINE [Concomitant]
     Active Substance: MEPIVACAINE\MEPIVACAINE HYDROCHLORIDE
     Dosage: UNK
     Dates: start: 20140614, end: 20140618
  16. HIERRO [Concomitant]
     Route: 065
  17. FLUOROURACIL. [Suspect]
     Active Substance: FLUOROURACIL
     Indication: COLORECTAL CANCER METASTATIC
     Dosage: 4800 MG, QCY
     Route: 042
     Dates: start: 20140602, end: 20140602
  18. PARAFFIN [Concomitant]
     Active Substance: PARAFFIN
     Dosage: UNK
     Dates: start: 20140528
  19. ENALAPRIL [Concomitant]
     Active Substance: ENALAPRIL
     Dosage: UNK
  20. LACTULOSE. [Concomitant]
     Active Substance: LACTULOSE
     Dosage: UNK
     Dates: start: 20140528

REACTIONS (13)
  - Diarrhoea [Recovered/Resolved]
  - Hydronephrosis [Recovering/Resolving]
  - Nausea [Recovered/Resolved]
  - Abdominal pain lower [Recovering/Resolving]
  - Dizziness [Recovered/Resolved]
  - Constipation [Recovered/Resolved]
  - Oliguria [Recovered/Resolved]
  - Vomiting [Recovered/Resolved]
  - Pyrexia [Recovered/Resolved]
  - Acute kidney injury [Recovered/Resolved]
  - Neutropenia [Recovered/Resolved]
  - Oedema peripheral [Recovered/Resolved]
  - Abdominal pain [Recovered/Resolved]

NARRATIVE: CASE EVENT DATE: 20140613
